FAERS Safety Report 8331610-7 (Version None)
Quarter: 2012Q2

REPORT INFORMATION
  Report Type: 
  Country: None (occurrence: None)
  Receive Date: 20120502
  Receipt Date: 20120419
  Transmission Date: 20120825
  Serious: No
  Sender: FDA-Public Use
  Company Number: US-AMGEN-USASP2012024806

PATIENT
  Age: 62 Year
  Sex: Female

DRUGS (6)
  1. PREDNISONE [Concomitant]
     Dosage: 1 MG, UNK
  2. ENBREL [Suspect]
     Indication: RHEUMATOID ARTHRITIS
     Dosage: 50 MG, QWK
     Dates: start: 20120201
  3. METHOTREXATE [Concomitant]
     Dosage: 1 MG, UNK
  4. FLONASE [Concomitant]
     Dosage: 1 UNK, UNK
  5. FOLIC ACID [Concomitant]
     Dosage: 1 MG, UNK
  6. LEVOTHYROXINE SODIUM [Concomitant]
     Dosage: 1 MUG, UNK

REACTIONS (1)
  - INJECTION SITE ERYTHEMA [None]
